FAERS Safety Report 10097329 (Version 1)
Quarter: 2014Q2

REPORT INFORMATION
  Report Type: Spontaneous
  Country: US (occurrence: US)
  Receive Date: 20140423
  Receipt Date: 20140423
  Transmission Date: 20141212
  Serious: Yes (Other)
  Sender: FDA-Public Use
  Company Number: PHHY2014US046365

PATIENT
  Sex: 0

DRUGS (5)
  1. CARBOPLATIN [Suspect]
     Indication: ASTROCYTOMA MALIGNANT
  2. VINCRISTINE [Suspect]
     Indication: ASTROCYTOMA MALIGNANT
  3. TEMOZOLOMIDE [Suspect]
     Indication: ASTROCYTOMA MALIGNANT
  4. VINBLASTINE [Suspect]
     Indication: ASTROCYTOMA MALIGNANT
  5. LOMUSTINE [Suspect]
     Indication: ASTROCYTOMA MALIGNANT

REACTIONS (4)
  - Astrocytoma malignant [Unknown]
  - Visual impairment [Unknown]
  - Hemiparesis [Unknown]
  - Malignant neoplasm progression [Unknown]
